FAERS Safety Report 12124934 (Version 1)
Quarter: 2016Q1

REPORT INFORMATION
  Report Type: Spontaneous
  Country: US (occurrence: US)
  Receive Date: 20160229
  Receipt Date: 20160229
  Transmission Date: 20160526
  Serious: No
  Sender: FDA-Public Use
  Company Number: US-009507513-1602USA010278

PATIENT
  Age: 69 Year
  Sex: Male

DRUGS (1)
  1. BELSOMRA [Suspect]
     Active Substance: SUVOREXANT
     Indication: INSOMNIA
     Dosage: ONCE NIGHTLY
     Route: 048
     Dates: start: 20150217

REACTIONS (2)
  - Middle insomnia [Unknown]
  - Nightmare [Unknown]

NARRATIVE: CASE EVENT DATE: 20150217
